FAERS Safety Report 5871858-4 (Version None)
Quarter: 2008Q3

REPORT INFORMATION
  Report Type: 
  Country: None (occurrence: None)
  Receive Date: 20080904
  Receipt Date: 20080904
  Transmission Date: 20090109
  Serious: Yes (Hospitalization)
  Sender: FDA-Public Use
  Company Number: None

PATIENT
  Age: 64 Year
  Sex: Male

DRUGS (7)
  1. PHENYTOIN [Suspect]
     Indication: CONVULSION
     Dosage: 100MG TID PO
     Route: 048
     Dates: start: 20080501, end: 20080604
  2. THIAMINE HCL [Concomitant]
  3. AMANTADINE HCL [Concomitant]
  4. ASPIRIN [Concomitant]
  5. KEPPRA [Concomitant]
  6. ROPINIROLE [Concomitant]
  7. PROCTO-KIT [Concomitant]

REACTIONS (4)
  - ABDOMINAL PAIN [None]
  - DRUG LEVEL INCREASED [None]
  - ELECTROCARDIOGRAM ST SEGMENT ABNORMAL [None]
  - NAUSEA [None]
